FAERS Safety Report 9970183 (Version 1)
Quarter: 2014Q1

REPORT INFORMATION
  Report Type: Not Available
  Country: FR (occurrence: FR)
  Receive Date: 20140306
  Receipt Date: 20140306
  Transmission Date: 20141002
  Serious: Yes (Hospitalization)
  Sender: FDA-Public Use
  Company Number: FR-ASTELLAS-2014EU001775

PATIENT
  Age: 83 Year
  Sex: Male

DRUGS (6)
  1. VESICARE [Suspect]
     Dosage: UNK
     Route: 048
     Dates: start: 20131105, end: 20131125
  2. DRIPTANE [Suspect]
     Dosage: UNK
     Route: 048
     Dates: start: 20131127, end: 20131202
  3. PLAVIX [Concomitant]
     Indication: MYOCARDIAL INFARCTION
     Dosage: 1 DF, UID/QD
     Route: 048
  4. TAHOR [Concomitant]
     Indication: HYPERCHOLESTEROLAEMIA
     Dosage: 1 DF, UID/QD
     Route: 048
  5. TRIATEC                            /00885601/ [Concomitant]
     Dosage: 1 DF, UID/QD
     Route: 048
  6. TEMERIT [Concomitant]
     Dosage: 1 DF, UID/QD
     Route: 048

REACTIONS (2)
  - Confusional state [Recovered/Resolved]
  - Fall [Recovered/Resolved]
